FAERS Safety Report 11908743 (Version 1)
Quarter: 2016Q1

REPORT INFORMATION
  Report Type: Spontaneous
  Country: US (occurrence: US)
  Receive Date: 20160111
  Receipt Date: 20160111
  Transmission Date: 20160526
  Serious: No
  Sender: FDA-Public Use
  Company Number: US-GLAXOSMITHKLINE-US2016002940

PATIENT
  Sex: Female

DRUGS (2)
  1. NICORETTE [Suspect]
     Active Substance: NICOTINE
     Indication: STRESS
     Dosage: 2 MG, UNK
  2. NICORETTE [Suspect]
     Active Substance: NICOTINE
     Indication: PRODUCT USED FOR UNKNOWN INDICATION
     Dosage: 4 MG, UNK

REACTIONS (1)
  - Product use issue [Unknown]
